FAERS Safety Report 23810859 (Version 1)
Quarter: 2024Q2

REPORT INFORMATION
  Report Type: Other
  Country: AU (occurrence: None)
  Receive Date: 20240502
  Receipt Date: 20240502
  Transmission Date: 20240716
  Serious: Yes (Other)
  Sender: FDA-Public Use
  Company Number: AU-ROCHE-3556072

PATIENT

DRUGS (6)
  1. COBIMETINIB [Suspect]
     Active Substance: COBIMETINIB
     Indication: Malignant melanoma
     Route: 065
  2. VEMURAFENIB [Suspect]
     Active Substance: VEMURAFENIB
     Indication: Malignant melanoma
     Route: 065
  3. DABRAFENIB [Suspect]
     Active Substance: DABRAFENIB
     Indication: Malignant melanoma
     Route: 065
  4. TRAMETINIB [Suspect]
     Active Substance: TRAMETINIB
     Indication: Malignant melanoma
     Route: 065
  5. ENCORAFENIB [Suspect]
     Active Substance: ENCORAFENIB
     Indication: Malignant melanoma
     Route: 065
  6. BINIMETINIB [Suspect]
     Active Substance: BINIMETINIB
     Indication: Malignant melanoma
     Route: 065

REACTIONS (13)
  - Pyrexia [Unknown]
  - Rash [Unknown]
  - Myositis [Unknown]
  - Arthralgia [Unknown]
  - Guillain-Barre syndrome [Unknown]
  - Cytokine release syndrome [Unknown]
  - Drug reaction with eosinophilia and systemic symptoms [Unknown]
  - Bell^s palsy [Unknown]
  - Paraesthesia [Unknown]
  - Headache [Unknown]
  - Nausea [Unknown]
  - Neutropenia [Unknown]
  - Cardiac disorder [Unknown]
